FAERS Safety Report 10435054 (Version 2)
Quarter: 2015Q1

REPORT INFORMATION
  Report Type: Spontaneous
  Country: US (occurrence: None)
  Receive Date: 20140618
  Receipt Date: 20150129
  Transmission Date: 20150720
  Serious: Yes (Hospitalization)
  Sender: FDA-Public Use
  Company Number: 104443U

PATIENT
  Age: 33 Year
  Sex: Male
  Weight: 56.2 kg

DRUGS (3)
  1. LAMICTAL [Concomitant]
     Active Substance: LAMOTRIGINE
  2. KEPPRA [Suspect]
     Active Substance: LEVETIRACETAM
     Indication: SEIZURE
     Dosage: 1000 MG(STRENGTH), ORAL
     Route: 048
     Dates: end: 2013
  3. VIMPAT [Suspect]
     Active Substance: LACOSAMIDE
     Indication: SEIZURE
     Dosage: 200 MG (STRENGTH), ORAL
     Route: 048
     Dates: end: 2013

REACTIONS (2)
  - Seizure [None]
  - Aura [None]

NARRATIVE: CASE EVENT DATE: 201311
